FAERS Safety Report 12831311 (Version 2)
Quarter: 2017Q1

REPORT INFORMATION
  Report Type: Spontaneous
  Country: FR (occurrence: FR)
  Receive Date: 20161008
  Receipt Date: 20170105
  Transmission Date: 20170428
  Serious: Yes (Hospitalization)
  Sender: FDA-Public Use
  Company Number: FR-ABBVIE-16P-056-1745384-00

PATIENT
  Age: 57 Year
  Sex: Male

DRUGS (10)
  1. PREGABALINE (LYRICA) (NON-ABBVIE) [Concomitant]
     Indication: PAIN
     Dates: start: 2016
  2. POLYMYXINE/NEOMYCINE/FLUDROCORTISONE/LIDOCAINE (PANOTILE) (NON-ABBVIE) [Concomitant]
     Indication: EAR INFECTION
  3. CHOLECALCIFEROL/CALCIUM (OROCAL D3) (NON-ABBVIE) [Concomitant]
     Indication: PRODUCT USED FOR UNKNOWN INDICATION
  4. VALACICLOVIR (NON-ABBVIE) [Concomitant]
     Indication: ORAL HERPES
     Route: 065
  5. DESLORATADINE (NON-ABBVIE) [Concomitant]
     Indication: SEASONAL ALLERGY
  6. VALSARTAN/HYDROCHLOROTHIAZIDE (NON-ABBVIE) [Concomitant]
     Indication: PRODUCT USED FOR UNKNOWN INDICATION
     Dosage: 80/12.5 MG
  7. PREGABALINE (LYRICA) (NON-ABBVIE) [Concomitant]
     Indication: SPONDYLITIS
  8. PARACETAMOL (NON-ABBVIE) [Concomitant]
     Indication: PRODUCT USED FOR UNKNOWN INDICATION
  9. PANTOPRAZOLE (INIPOMP)  (NON-ABBVIE) [Concomitant]
     Indication: PRODUCT USED FOR UNKNOWN INDICATION
  10. HUMIRA [Suspect]
     Active Substance: ADALIMUMAB
     Indication: ANKYLOSING SPONDYLITIS
     Route: 058
     Dates: start: 201604, end: 201606

REACTIONS (1)
  - Panniculitis lobular [Recovered/Resolved]

NARRATIVE: CASE EVENT DATE: 201606
